FAERS Safety Report 5656812-X (Version None)
Quarter: 2008Q1

REPORT INFORMATION
  Report Type: 
  Country: None (occurrence: None)
  Receive Date: 20080219
  Receipt Date: 20071031
  Transmission Date: 20080703
  Serious: No
  Sender: FDA-Public Use
  Company Number: WAES 0711USA00222

PATIENT
  Sex: Male

DRUGS (6)
  1. JANUVIA [Suspect]
     Indication: TYPE 2 DIABETES MELLITUS
     Dosage: 100 MG/DAILY/PO
     Route: 048
     Dates: start: 20070822, end: 20070101
  2. CRESTOR [Concomitant]
  3. PAXIL [Concomitant]
  4. PROTONIX [Concomitant]
  5. ASPIRIN [Concomitant]
  6. PRENISONE [Concomitant]

REACTIONS (2)
  - DERMATITIS [None]
  - DRUG ERUPTION [None]
